FAERS Safety Report 7949130-8 (Version None)
Quarter: 2011Q4

REPORT INFORMATION
  Report Type: 
  Country: None (occurrence: None)
  Receive Date: 20111123
  Receipt Date: 20111118
  Transmission Date: 20120403
  Serious: Yes (Other)
  Sender: FDA-Public Use
  Company Number: ACO_24777_2011

PATIENT
  Age: 27 Year
  Sex: Female

DRUGS (4)
  1. REBIF [Concomitant]
  2. ZOLOFT [Concomitant]
  3. LYRICA [Concomitant]
  4. AMPYRA [Suspect]
     Indication: PRODUCT USED FOR UNKNOWN INDICATION
     Dates: start: 20110501, end: 20110501

REACTIONS (1)
  - DRUG HYPERSENSITIVITY [None]
